FAERS Safety Report 7570379-0 (Version None)
Quarter: 2011Q2

REPORT INFORMATION
  Report Type: 
  Country: None (occurrence: None)
  Receive Date: 20110624
  Receipt Date: 20110618
  Transmission Date: 20111010
  Serious: Yes (Death)
  Sender: FDA-Public Use
  Company Number: US-PFIZER INC-2011134474

PATIENT
  Sex: Male
  Weight: 75.283 kg

DRUGS (2)
  1. NEXIUM [Concomitant]
     Dosage: 20 MG, UNK
  2. CELECOXIB [Suspect]
     Indication: OSTEOARTHRITIS
     Dosage: 100 MG, 2X/DAY

REACTIONS (1)
  - DEATH [None]
